FAERS Safety Report 6194018-9 (Version None)
Quarter: 2009Q2

REPORT INFORMATION
  Report Type: 
  Country: None (occurrence: None)
  Receive Date: 20090518
  Receipt Date: 20090515
  Transmission Date: 20091009
  Serious: Yes (Death)
  Sender: FDA-Public Use
  Company Number: PHEH2009US04923

PATIENT
  Age: 42 Year
  Sex: Female
  Weight: 113.38 kg

DRUGS (5)
  1. TEKTURNA [Suspect]
     Indication: HYPERTENSION
     Dosage: 150 MG, ONCE/SINGLE
     Dates: start: 20090401, end: 20090401
  2. CLONIDINE [Concomitant]
  3. NORVASC [Concomitant]
  4. COREG [Concomitant]
     Dosage: 40 MG, UNK
  5. LORAZEPAM [Concomitant]

REACTIONS (1)
  - DEATH [None]
